FAERS Safety Report 4801607-X (Version None)
Quarter: 2005Q4

REPORT INFORMATION
  Report Type: 
  Country: None (occurrence: None)
  Receive Date: 20051011
  Receipt Date: 20050927
  Transmission Date: 20060501
  Serious: Yes (Hospitalization)
  Sender: FDA-Public Use
  Company Number: US-2005-020118

PATIENT
  Age: 35 Year
  Sex: Female

DRUGS (1)
  1. BETASERON(INTERFERON BETA - 1B) INJECTION, 250UG [Suspect]
     Indication: RELAPSING-REMITTING MULTIPLE SCLEROSIS
     Dosage: 8 MIU, EVERY 2D SUBCUTANEOUS
     Route: 058
     Dates: start: 20050426

REACTIONS (4)
  - CHILLS [None]
  - ENERGY INCREASED [None]
  - PYREXIA [None]
  - THYROID MASS [None]
